FAERS Safety Report 24714177 (Version 1)
Quarter: 2024Q4

REPORT INFORMATION
  Report Type: Spontaneous
  Country: US (occurrence: US)
  Receive Date: 20241209
  Receipt Date: 20241209
  Transmission Date: 20250114
  Serious: No
  Sender: REGENERON
  Company Number: US-REGENERON PHARMACEUTICALS, INC.-2024-147632

PATIENT
  Sex: Female

DRUGS (2)
  1. EYLEA [Suspect]
     Active Substance: AFLIBERCEPT
     Indication: Neovascular age-related macular degeneration
     Dosage: Q6W, RIGHT EYE, FORMULATION: UNKNOWN
     Dates: start: 20240715
  2. EYLEA [Suspect]
     Active Substance: AFLIBERCEPT
     Dosage: Q6W, RIGHT EYE, FORMULATION: UNKNOWN
     Dates: start: 20240909, end: 20240909

REACTIONS (4)
  - Photophobia [Not Recovered/Not Resolved]
  - Metamorphopsia [Not Recovered/Not Resolved]
  - Visual impairment [Not Recovered/Not Resolved]
  - Intraocular pressure increased [Recovering/Resolving]

NARRATIVE: CASE EVENT DATE: 20240101
